FAERS Safety Report 10719509 (Version 2)
Quarter: 2015Q1

REPORT INFORMATION
  Report Type: Spontaneous
  Country: US (occurrence: US)
  Receive Date: 20150119
  Receipt Date: 20150119
  Transmission Date: 20150721
  Serious: No
  Sender: FDA-Public Use
  Company Number: US-UNITED THERAPEUTICS-UNT-2014-004364

PATIENT
  Age: 51 Year
  Sex: Female

DRUGS (1)
  1. REMODULIN [Suspect]
     Active Substance: TREPROSTINIL
     Indication: PULMONARY HYPERTENSION
     Dosage: UNK MG/ML, UNK
     Route: 041
     Dates: start: 20140121

REACTIONS (5)
  - Chills [Unknown]
  - Vomiting [Unknown]
  - Fluid retention [Unknown]
  - Nausea [Unknown]
  - Weight increased [Unknown]

NARRATIVE: CASE EVENT DATE: 20140715
